FAERS Safety Report 16425797 (Version 1)
Quarter: 2019Q2

REPORT INFORMATION
  Report Type: Spontaneous
  Country: US (occurrence: US)
  Receive Date: 20190613
  Receipt Date: 20190613
  Transmission Date: 20190711
  Serious: No
  Sender: FDA-Public Use
  Company Number: US-ADDMEDICA-201900090

PATIENT
  Age: 5 Year
  Sex: Male

DRUGS (1)
  1. SIKLOS [Suspect]
     Active Substance: HYDROXYUREA
     Indication: SICKLE CELL DISEASE
     Dates: start: 201903, end: 201903

REACTIONS (2)
  - Abdominal pain upper [Recovered/Resolved]
  - Energy increased [Unknown]

NARRATIVE: CASE EVENT DATE: 201903
